FAERS Safety Report 7190576-6 (Version None)
Quarter: 2010Q4

REPORT INFORMATION
  Report Type: 
  Country: None (occurrence: None)
  Receive Date: 20101223
  Receipt Date: 20101215
  Transmission Date: 20110411
  Serious: Yes (Other)
  Sender: FDA-Public Use
  Company Number: CA-JNJFOC-20101206411

PATIENT
  Sex: Female

DRUGS (13)
  1. REMICADE [Suspect]
     Indication: RHEUMATOID ARTHRITIS
     Route: 042
  2. KETOROLAC TROMETHAMINE [Concomitant]
     Indication: INFLAMMATION
     Route: 047
  3. PRED FORTE [Concomitant]
     Indication: INFLAMMATION
     Dosage: RIGHT EYE
     Route: 047
  4. NASONEX [Concomitant]
     Indication: MULTIPLE ALLERGIES
     Dosage: 2 SPRAYS TO EACH NARE
     Route: 045
  5. REACTINE [Concomitant]
     Indication: MULTIPLE ALLERGIES
  6. CELLCEPT [Concomitant]
     Indication: RHEUMATOID ARTHRITIS
  7. CELEBREX [Concomitant]
     Indication: RHEUMATOID ARTHRITIS
  8. PREMARIN [Concomitant]
     Indication: HORMONE REPLACEMENT THERAPY
  9. PANTOPRAZOLE [Concomitant]
     Indication: GASTROOESOPHAGEAL REFLUX DISEASE
  10. BRICANYL [Concomitant]
     Indication: ASTHMA
     Dosage: 1 OR 2 PUFFS PRN
  11. FLOVENT [Concomitant]
     Indication: ASTHMA
     Dosage: 2 PUFFS PRN
  12. CALCIUM [Concomitant]
     Indication: NUTRITIONAL SUPPORT
  13. VITAMIN D [Concomitant]
     Indication: NUTRITIONAL SUPPORT

REACTIONS (4)
  - EYELID OEDEMA [None]
  - OCULAR HYPERAEMIA [None]
  - PNEUMONIA [None]
  - SINUSITIS [None]
